FAERS Safety Report 8511955-8 (Version None)
Quarter: 2012Q3

REPORT INFORMATION
  Report Type: 
  Country: None (occurrence: None)
  Receive Date: 20120716
  Receipt Date: 20120712
  Transmission Date: 20120928
  Serious: Yes (Other)
  Sender: FDA-Public Use
  Company Number: PHHY2012AU060058

PATIENT
  Sex: Female

DRUGS (1)
  1. EXJADE [Suspect]
     Indication: IRON OVERLOAD
     Dosage: 500 MG, UNK
     Route: 048
     Dates: start: 20120331, end: 20120601

REACTIONS (6)
  - PELVIC FRACTURE [None]
  - FALL [None]
  - OEDEMA PERIPHERAL [None]
  - RIB FRACTURE [None]
  - PAIN IN EXTREMITY [None]
  - ERYTHEMA [None]
